FAERS Safety Report 7319840-4 (Version None)
Quarter: 2011Q1

REPORT INFORMATION
  Report Type: 
  Country: None (occurrence: None)
  Receive Date: 20110228
  Receipt Date: 20101019
  Transmission Date: 20110831
  Serious: No
  Sender: FDA-Public Use
  Company Number: A0887613A

PATIENT
  Age: 31 Year
  Sex: Female

DRUGS (4)
  1. AVELOX [Concomitant]
  2. LAMICTAL [Suspect]
     Indication: BIPOLAR DISORDER
     Dosage: 25MG TWICE PER DAY
     Route: 048
     Dates: start: 20090601, end: 20100601
  3. LAMOTRIGINE [Suspect]
     Indication: BIPOLAR DISORDER
     Dosage: 100MG TWICE PER DAY
     Route: 048
     Dates: start: 20100601, end: 20101018
  4. LEVAQUIN [Concomitant]

REACTIONS (9)
  - PRURITUS [None]
  - PARAESTHESIA [None]
  - RASH MACULAR [None]
  - URTICARIA [None]
  - RASH [None]
  - HYPOAESTHESIA [None]
  - NAUSEA [None]
  - BLISTER [None]
  - ERYTHEMA [None]
